FAERS Safety Report 10684606 (Version 1)
Quarter: 2014Q4

REPORT INFORMATION
  Report Type: Spontaneous
  Country: FR (occurrence: None)
  Receive Date: 20141229
  Receipt Date: 20141229
  Transmission Date: 20150529
  Serious: Yes (Other)
  Sender: FDA-Public Use
  Company Number: 2679398

PATIENT
  Age: 64 Year
  Sex: Female
  Weight: 86 kg

DRUGS (2)
  1. (CARBOPLATIN) [Suspect]
     Active Substance: CARBOPLATIN
     Indication: OVARIAN EPITHELIAL CANCER
     Dosage: 560 MG MILLIGRAM(S), 1 CYCLICAL, INTRAVENOUS DRIP
     Route: 041
     Dates: start: 20141125, end: 20141125
  2. CAELYX [Suspect]
     Active Substance: DOXORUBICIN HYDROCHLORIDE
     Indication: OVARIAN EPITHELIAL CANCER
     Dosage: 60 MG MILLIGRAM(S), 1 CYCLICAL, INTRAVENOUS DRIP
     Route: 041
     Dates: start: 20141125, end: 20141125

REACTIONS (6)
  - Pruritus [None]
  - Oropharyngeal discomfort [None]
  - Abdominal pain upper [None]
  - Cough [None]
  - Hypertension [None]
  - Palmar erythema [None]

NARRATIVE: CASE EVENT DATE: 20141125
